FAERS Safety Report 7460136-8 (Version None)
Quarter: 2011Q2

REPORT INFORMATION
  Report Type: 
  Country: None (occurrence: None)
  Receive Date: 20110505
  Receipt Date: 20110428
  Transmission Date: 20111010
  Serious: Yes (Hospitalization, Other)
  Sender: FDA-Public Use
  Company Number: US-ELI_LILLY_AND_COMPANY-US200903003324

PATIENT
  Sex: Female
  Weight: 78.458 kg

DRUGS (17)
  1. LIPITOR [Concomitant]
     Indication: BLOOD CHOLESTEROL
  2. AMARYL [Concomitant]
     Indication: DIABETES MELLITUS
  3. NIASPAN [Concomitant]
     Indication: BLOOD CHOLESTEROL
  4. BYETTA [Suspect]
     Dosage: UNK, UNK
     Dates: start: 20071001, end: 20080101
  5. BYETTA [Suspect]
     Dates: start: 20080423, end: 20080701
  6. COREG [Concomitant]
     Indication: BLOOD PRESSURE INCREASED
  7. PROTONIX [Concomitant]
     Indication: DYSPEPSIA
  8. ALTACE [Concomitant]
     Indication: HYPERTENSION
  9. METFORMIN [Concomitant]
     Indication: DIABETES MELLITUS
  10. LASIX [Concomitant]
     Indication: BLOOD PRESSURE INCREASED
  11. LORTAB [Concomitant]
     Indication: PAIN
  12. ASPIRIN [Concomitant]
  13. SIMVASTATIN [Concomitant]
  14. BYETTA [Suspect]
     Dates: start: 20080206, end: 20080306
  15. BYETTA [Suspect]
     Dates: start: 20090101, end: 20090201
  16. LOVAZA [Concomitant]
     Indication: DIABETES MELLITUS
  17. ESTRACE [Concomitant]

REACTIONS (3)
  - PANCREATITIS ACUTE [None]
  - RENAL INJURY [None]
  - WEIGHT DECREASED [None]
